FAERS Safety Report 9291690 (Version 2)
Quarter: 2013Q2

REPORT INFORMATION
  Report Type: Spontaneous
  Country: US (occurrence: US)
  Receive Date: 20130516
  Receipt Date: 20130530
  Transmission Date: 20140414
  Serious: Yes (Hospitalization, Other)
  Sender: FDA-Public Use
  Company Number: US-MERCK-1305USA007562

PATIENT
  Age: 68 Year
  Sex: Female
  Weight: 99.32 kg

DRUGS (3)
  1. JANUVIA [Suspect]
     Indication: TYPE 2 DIABETES MELLITUS
     Dosage: 100 MG PER DAY
     Route: 048
     Dates: start: 20090507, end: 20091203
  2. JANUMET [Concomitant]
     Dosage: UNK, BID
     Route: 048
  3. LEVEMIR [Concomitant]
     Dosage: 35 IU, HS
     Route: 058

REACTIONS (4)
  - Impaired gastric emptying [Recovered/Resolved]
  - Aspartate aminotransferase increased [Recovered/Resolved]
  - Alanine aminotransferase increased [Recovered/Resolved]
  - Lipase increased [Recovered/Resolved]
